FAERS Safety Report 19318083 (Version 1)
Quarter: 2021Q2

REPORT INFORMATION
  Report Type: Spontaneous
  Country: CA (occurrence: CA)
  Receive Date: 20210527
  Receipt Date: 20210527
  Transmission Date: 20210717
  Serious: Yes (Other)
  Sender: FDA-Public Use
  Company Number: CA-JAZZ-2021-CA-009212

PATIENT
  Age: 3 Month
  Sex: Male

DRUGS (7)
  1. ASPARAGINASE [Suspect]
     Active Substance: ASPARAGINASE
     Indication: CHLOROMA
     Dosage: UNKNOWN DOSE
     Route: 042
  2. FLUDARABINE PHOSPHATE. [Suspect]
     Active Substance: FLUDARABINE PHOSPHATE
     Indication: CHLOROMA
  3. METHOTREXATE. [Suspect]
     Active Substance: METHOTREXATE
     Indication: CHLOROMA
  4. ETOPOSIDE. [Suspect]
     Active Substance: ETOPOSIDE
     Indication: CHLOROMA
  5. CYTARABINE. [Suspect]
     Active Substance: CYTARABINE
     Indication: CHLOROMA
  6. HYDROCORTISONE SODIUM SUCCINATE [Suspect]
     Active Substance: HYDROCORTISONE SODIUM SUCCINATE
     Indication: CHLOROMA
  7. DAUNORUBICIN HYDROCHLORIDE. [Suspect]
     Active Substance: DAUNORUBICIN HYDROCHLORIDE
     Indication: CHLOROMA

REACTIONS (7)
  - Septic shock [Unknown]
  - Neoplasm progression [Unknown]
  - Hydrocephalus [Unknown]
  - Infection [Unknown]
  - Off label use [Unknown]
  - General physical health deterioration [Unknown]
  - Pyrexia [Unknown]
